FAERS Safety Report 14599466 (Version 2)
Quarter: 2018Q2

REPORT INFORMATION
  Report Type: Spontaneous
  Country: FR (occurrence: FR)
  Receive Date: 20180305
  Receipt Date: 20180423
  Transmission Date: 20180711
  Serious: Yes (Other)
  Sender: FDA-Public Use
  Company Number: FR-PFIZER INC-2018027583

PATIENT
  Age: 10 Year
  Sex: Female
  Weight: 34 kg

DRUGS (2)
  1. ZARONTIN [Suspect]
     Active Substance: ETHOSUXIMIDE
     Indication: PETIT MAL EPILEPSY
     Dosage: 6 ML, 2X/DAY (MORNING AND IN THE EVENING)
     Route: 048
     Dates: start: 20170906
  2. ZARONTIN [Suspect]
     Active Substance: ETHOSUXIMIDE
     Dosage: UNK
     Dates: start: 20180124

REACTIONS (9)
  - Decreased appetite [Recovering/Resolving]
  - Suicidal ideation [Recovering/Resolving]
  - Crying [Recovering/Resolving]
  - Paranoia [Recovering/Resolving]
  - Dissociative amnesia [Recovering/Resolving]
  - Abnormal behaviour [Recovering/Resolving]
  - Emotional disorder [Recovering/Resolving]
  - Overdose [Unknown]
  - Thinking abnormal [Recovering/Resolving]

NARRATIVE: CASE EVENT DATE: 20171224
